FAERS Safety Report 15298650 (Version 1)
Quarter: 2018Q3

REPORT INFORMATION
  Report Type: Spontaneous
  Country: CH (occurrence: CH)
  Receive Date: 20180820
  Receipt Date: 20180820
  Transmission Date: 20181010
  Serious: Yes (Hospitalization, Other)
  Sender: FDA-Public Use
  Company Number: CH-NAPPMUNDI-DEU-2014-0014129

PATIENT
  Age: 38 Year
  Sex: Male
  Weight: 120 kg

DRUGS (6)
  1. DOLOPHINE [Concomitant]
     Active Substance: METHADONE HYDROCHLORIDE
     Dosage: 45 MG, DAILY
  2. OXYCONTIN 10 MG TABLETTEN RETARD [Concomitant]
     Indication: PAIN
     Dosage: 10 MG, DAILY
     Route: 048
  3. ANTIBIOTICS [Concomitant]
     Active Substance: UNSPECIFIED INGREDIENT
  4. TARGIN TABLETTEN RETARD [Concomitant]
     Active Substance: NALOXONE HYDROCHLORIDE\OXYCODONE HYDROCHLORIDE
     Dosage: 40/20 MG, DAILY
     Route: 048
  5. OXYNORM TROPFEN [Suspect]
     Active Substance: OXYCODONE HYDROCHLORIDE
     Indication: PAIN
     Route: 058
  6. NOVALGIN (METAMIZOLE SODIUM) [Concomitant]
     Active Substance: METAMIZOLE SODIUM
     Dosage: 500 MG, DAILY
     Route: 048

REACTIONS (3)
  - Injection site abscess [Recovered/Resolved]
  - Leg amputation [Unknown]
  - Incorrect route of drug administration [Unknown]

NARRATIVE: CASE EVENT DATE: 20140225
